FAERS Safety Report 13497001 (Version 1)
Quarter: 2017Q2

REPORT INFORMATION
  Report Type: Spontaneous
  Country: CN (occurrence: CN)
  Receive Date: 20170428
  Receipt Date: 20170428
  Transmission Date: 20170830
  Serious: Yes (Other)
  Sender: FDA-Public Use
  Company Number: CN-PFIZER INC-2017177706

PATIENT
  Age: 74 Year
  Sex: Female
  Weight: 45 kg

DRUGS (4)
  1. TEICOPLANIN [Interacting]
     Active Substance: TEICOPLANIN
     Indication: LUNG INFECTION
     Dosage: 0.4 G, 2X/DAY (IVD Q12H)
  2. TEICOPLANIN [Interacting]
     Active Substance: TEICOPLANIN
     Dosage: UNK (AT 8:30)
     Route: 041
  3. CILASTATIN/IMIPENEM [Suspect]
     Active Substance: CILASTATIN SODIUM\IMIPENEM
     Indication: LUNG INFECTION
     Dosage: 1 G, 3X/DAY (IVD Q8H)
  4. CILASTATIN/IMIPENEM [Interacting]
     Active Substance: CILASTATIN SODIUM\IMIPENEM
     Dosage: UNK (AT 9:30)
     Route: 041

REACTIONS (5)
  - Clonus [Recovered/Resolved]
  - Overdose [Unknown]
  - Confusional state [Recovered/Resolved]
  - Drug interaction [Unknown]
  - Musculoskeletal stiffness [Recovered/Resolved]
